FAERS Safety Report 7314213-2 (Version None)
Quarter: 2011Q1

REPORT INFORMATION
  Report Type: 
  Country: None (occurrence: None)
  Receive Date: 20110225
  Receipt Date: 20100706
  Transmission Date: 20110831
  Serious: No
  Sender: FDA-Public Use
  Company Number: US-MYLANLABS-2010S1010334

PATIENT
  Age: 21 Year
  Sex: Female
  Weight: 79.56 kg

DRUGS (4)
  1. AMNESTEEM [Suspect]
     Indication: ACNE CYSTIC
     Route: 048
     Dates: start: 20091201, end: 20100501
  2. ZYRTEC [Concomitant]
  3. NASONEX [Concomitant]
  4. ORAL CONTRACEPTIVE NOS [Concomitant]

REACTIONS (3)
  - BLOOD TRIGLYCERIDES INCREASED [None]
  - HEPATIC ENZYME INCREASED [None]
  - BLOOD CHOLESTEROL INCREASED [None]
